FAERS Safety Report 21935188 (Version 1)
Quarter: 2023Q1

REPORT INFORMATION
  Report Type: Spontaneous
  Country: DE (occurrence: None)
  Receive Date: 20230201
  Receipt Date: 20230201
  Transmission Date: 20230418
  Serious: Yes (Other)
  Sender: FDA-Public Use
  Company Number: DE-ROCHE-3273706

PATIENT
  Sex: Female

DRUGS (1)
  1. RISDIPLAM [Suspect]
     Active Substance: RISDIPLAM
     Indication: Product used for unknown indication
     Route: 065
     Dates: start: 2021

REACTIONS (8)
  - Loss of consciousness [Unknown]
  - Asthenia [Unknown]
  - Headache [Unknown]
  - Burns second degree [Unknown]
  - Pain [Unknown]
  - Skin disorder [Unknown]
  - Urinary tract infection [Unknown]
  - Drug ineffective [Unknown]
